FAERS Safety Report 9178949 (Version 1)
Quarter: 2012Q4

REPORT INFORMATION
  Report Type: 
  Country: PL (occurrence: PL)
  Receive Date: 20121029
  Receipt Date: 20121029
  Transmission Date: 20130627
  Serious: Yes (Other)
  Sender: FDA-Public Use
  Company Number: PL-ROCHE-1146455

PATIENT
  Age: 50 Year
  Sex: Female

DRUGS (9)
  1. PEG-INTERFERON ALFA 2A [Suspect]
     Indication: PRODUCT USED FOR UNKNOWN INDICATION
     Route: 065
     Dates: start: 200507
  2. RIBAVIRIN [Suspect]
     Indication: PRODUCT USED FOR UNKNOWN INDICATION
     Route: 065
     Dates: start: 200507
  3. ZEFFIX [Concomitant]
  4. RITUXIMAB [Concomitant]
  5. CYCLOPHOSPHAMIDE [Concomitant]
  6. HYDROXYDAUNORUBICIN [Concomitant]
  7. ONCOVIN [Concomitant]
  8. PREDNISONE [Concomitant]
  9. GRANULOCYTE COLONY STIMULATING FACTOR (UNK INGREDIENTS) [Concomitant]

REACTIONS (2)
  - Lymphoma [Unknown]
  - Platelet count decreased [Unknown]
